FAERS Safety Report 16004702 (Version 1)
Quarter: 2019Q1

REPORT INFORMATION
  Report Type: Spontaneous
  Country: JP (occurrence: JP)
  Receive Date: 20190226
  Receipt Date: 20190226
  Transmission Date: 20190418
  Serious: Yes (Life-Threatening, Hospitalization)
  Sender: FDA-Public Use
  Company Number: JP-ROCHE-2273005

PATIENT
  Age: 4 Decade
  Sex: Female

DRUGS (3)
  1. CICLOSPORIN [Suspect]
     Active Substance: CYCLOSPORINE
     Indication: NEPHROTIC SYNDROME
     Route: 048
  2. RITUXAN [Suspect]
     Active Substance: RITUXIMAB
     Indication: NEPHROTIC SYNDROME
     Route: 041
  3. BETAMETHASONE. [Suspect]
     Active Substance: BETAMETHASONE
     Indication: NEPHROTIC SYNDROME
     Route: 048

REACTIONS (1)
  - Colon cancer [Not Recovered/Not Resolved]
